FAERS Safety Report 5060922-8 (Version None)
Quarter: 2006Q3

REPORT INFORMATION
  Report Type: 
  Country: None (occurrence: None)
  Receive Date: 20060721
  Receipt Date: 20060717
  Transmission Date: 20061208
  Serious: Yes (Hospitalization)
  Sender: FDA-Public Use
  Company Number: 2006BI008753

PATIENT
  Age: 75 Year
  Sex: Female

DRUGS (1)
  1. AVONEX [Suspect]
     Indication: MULTIPLE SCLEROSIS
     Dosage: 30 UG
     Dates: start: 20020601

REACTIONS (2)
  - MULTIPLE SCLEROSIS [None]
  - TRIGEMINAL NEURALGIA [None]
